FAERS Safety Report 15657043 (Version 1)
Quarter: 2018Q4

REPORT INFORMATION
  Report Type: Spontaneous
  Country: US (occurrence: US)
  Receive Date: 20181126
  Receipt Date: 20181126
  Transmission Date: 20190205
  Serious: Yes (Other)
  Sender: FDA-Public Use
  Company Number: US-SAKK-2018SA163480AA

PATIENT
  Sex: Female

DRUGS (1)
  1. DUPIXENT [Suspect]
     Active Substance: DUPILUMAB
     Indication: DERMATITIS
     Dosage: 300 MG, QOW
     Route: 058
     Dates: start: 20180413

REACTIONS (6)
  - Skin hypertrophy [Unknown]
  - Skin lesion [Unknown]
  - Depression [Unknown]
  - Alopecia [Unknown]
  - Pruritus [Unknown]
  - Suicidal ideation [Unknown]
